FAERS Safety Report 14779678 (Version 5)
Quarter: 2018Q3

REPORT INFORMATION
  Report Type: Report from Study
  Country: CA (occurrence: CA)
  Receive Date: 20180419
  Receipt Date: 20180715
  Transmission Date: 20181010
  Serious: Yes (Hospitalization, Other)
  Sender: FDA-Public Use
  Company Number: PHHY2018CA066701

PATIENT
  Sex: Male

DRUGS (5)
  1. EXJADE [Suspect]
     Active Substance: DEFERASIROX
     Dosage: 2 DF, QD (1000MG )
     Route: 048
  2. ELIQUIS [Concomitant]
     Active Substance: APIXABAN
     Indication: PRODUCT USED FOR UNKNOWN INDICATION
     Route: 065
  3. INSULIN [Concomitant]
     Active Substance: INSULIN NOS
     Indication: PRODUCT USED FOR UNKNOWN INDICATION
     Route: 065
  4. JAKAVI [Suspect]
     Active Substance: RUXOLITINIB
     Indication: MYELOFIBROSIS
     Dosage: 20 MG, BID
     Route: 048
     Dates: start: 20180413
  5. EXJADE [Suspect]
     Active Substance: DEFERASIROX
     Indication: IRON OVERLOAD
     Dosage: UNK
     Route: 048

REACTIONS (17)
  - Serum ferritin increased [Unknown]
  - Platelet count decreased [Unknown]
  - Weight increased [Unknown]
  - Somnolence [Unknown]
  - Glossodynia [Recovering/Resolving]
  - Fatigue [Unknown]
  - White blood cell count decreased [Unknown]
  - Neutrophil count decreased [Unknown]
  - Acne [Unknown]
  - Chills [Unknown]
  - Haemoglobin increased [Unknown]
  - Myocardial infarction [Unknown]
  - Appendicitis perforated [Unknown]
  - Oropharyngeal pain [Unknown]
  - Haemoglobin decreased [Unknown]
  - Red blood cell count decreased [Unknown]
  - Diarrhoea [Unknown]
